FAERS Safety Report 8881803 (Version 1)
Quarter: 2012Q4

REPORT INFORMATION
  Report Type: 
  Country: FR (occurrence: FR)
  Receive Date: 20121102
  Receipt Date: 20121102
  Transmission Date: 20130627
  Serious: Yes (Hospitalization, Other)
  Sender: FDA-Public Use
  Company Number: FR-BRISTOL-MYERS SQUIBB COMPANY-17073347

PATIENT
  Age: 62 Year
  Sex: Female

DRUGS (5)
  1. ABILIFY TABS 10 MG [Suspect]
     Dosage: 1 DF: 0.5 units NOS
     Route: 048
     Dates: start: 20080517, end: 20080808
  2. LANTUS [Concomitant]
  3. MADOPAR [Concomitant]
  4. COVERSYL [Concomitant]
  5. ELISOR [Concomitant]

REACTIONS (4)
  - Tubulointerstitial nephritis [Recovered/Resolved]
  - Pulmonary embolism [Recovered/Resolved]
  - Deep vein thrombosis [Recovered/Resolved]
  - Extrapyramidal disorder [Recovered/Resolved]
